FAERS Safety Report 9807122 (Version 1)
Quarter: 2014Q1

REPORT INFORMATION
  Report Type: Report from Study
  Country: US (occurrence: US)
  Receive Date: 20140110
  Receipt Date: 20140110
  Transmission Date: 20141002
  Serious: Yes (Hospitalization)
  Sender: FDA-Public Use
  Company Number: US-ROCHE-1329154

PATIENT
  Sex: Male

DRUGS (16)
  1. LUCENTIS [Suspect]
     Indication: DIABETIC RETINOPATHY
     Route: 050
  2. LUCENTIS [Suspect]
     Indication: MACULAR OEDEMA
  3. REQUIP [Concomitant]
  4. GABAPENTIN [Concomitant]
  5. ZOCOR [Concomitant]
  6. AMARYL [Concomitant]
  7. INSULIN [Concomitant]
  8. LANTUS [Concomitant]
  9. DIOVAN [Concomitant]
  10. EXFORGE [Concomitant]
  11. TRIAMCINOLONE [Concomitant]
     Route: 050
  12. TETRACAINE [Concomitant]
     Route: 065
  13. PROPARACAINE [Concomitant]
     Route: 065
  14. BETADINE [Concomitant]
     Route: 065
  15. SIMVASTATIN [Concomitant]
     Route: 065
     Dates: start: 20110804
  16. DILOXANIDE [Concomitant]

REACTIONS (16)
  - Pneumonia [Unknown]
  - Hypertension [Unknown]
  - Blood glucose increased [Unknown]
  - Hypertension [Unknown]
  - Pupillary reflex impaired [Unknown]
  - Periorbital fat herniation [Unknown]
  - Cystoid macular oedema [Unknown]
  - Ocular vascular disorder [Unknown]
  - Retinal exudates [Unknown]
  - Eye haemorrhage [Unknown]
  - Retinal exudates [Unknown]
  - Macular fibrosis [Unknown]
  - Retinopathy hypertensive [Unknown]
  - Posterior capsule opacification [Unknown]
  - Visual acuity reduced [Unknown]
  - Vitreous detachment [Unknown]
